FAERS Safety Report 7079045-1 (Version None)
Quarter: 2010Q4

REPORT INFORMATION
  Report Type: 
  Country: None (occurrence: None)
  Receive Date: 20101102
  Receipt Date: 20101029
  Transmission Date: 20110411
  Serious: Yes (Hospitalization)
  Sender: FDA-Public Use
  Company Number: FI-BIOGENIDEC-2010BI035993

PATIENT
  Age: 56 Year
  Sex: Male

DRUGS (3)
  1. AVONEX [Suspect]
     Indication: RELAPSING-REMITTING MULTIPLE SCLEROSIS
     Route: 030
     Dates: start: 20060421, end: 20101004
  2. ZOPINOX [Concomitant]
     Indication: INSOMNIA
  3. BURANA [Concomitant]
     Indication: INFLUENZA LIKE ILLNESS

REACTIONS (3)
  - HEPATIC NECROSIS [None]
  - HEPATITIS FULMINANT [None]
  - LIVER DISORDER [None]
